FAERS Safety Report 5123316-2 (Version None)
Quarter: 2006Q4

REPORT INFORMATION
  Report Type: 
  Country: None (occurrence: None)
  Receive Date: 20061009
  Receipt Date: 20060928
  Transmission Date: 20070319
  Serious: Yes (Hospitalization)
  Sender: FDA-Public Use
  Company Number: US-SANOFI-SYNTHELABO-A03200606013

PATIENT
  Sex: Male

DRUGS (2)
  1. INJECTION FOR PAIN [Suspect]
     Dosage: UNK
     Route: 065
     Dates: start: 20060401
  2. AMBIEN [Suspect]
     Indication: DRUG USE FOR UNKNOWN INDICATION
     Dosage: UNK
     Route: 048

REACTIONS (6)
  - CONFUSIONAL STATE [None]
  - FALL [None]
  - HALLUCINATION [None]
  - INJURY [None]
  - PELVIC FRACTURE [None]
  - SLEEP WALKING [None]
